FAERS Safety Report 6159593-9 (Version None)
Quarter: 2009Q2

REPORT INFORMATION
  Report Type: 
  Country: None (occurrence: None)
  Receive Date: 20090415
  Receipt Date: 20090415
  Transmission Date: 20091009
  Serious: Yes (Other)
  Sender: FDA-Public Use
  Company Number: None

PATIENT

DRUGS (1)
  1. MOTRIN [Suspect]
     Indication: PAIN
     Dosage: ONCE PO TID
     Route: 048

REACTIONS (6)
  - DRUG HYPERSENSITIVITY [None]
  - GASTRIC DISORDER [None]
  - HYPOPHAGIA [None]
  - MALAISE [None]
  - PRODUCT SUBSTITUTION ISSUE [None]
  - VOMITING [None]
